FAERS Safety Report 6290059-1 (Version None)
Quarter: 2009Q3

REPORT INFORMATION
  Report Type: 
  Country: None (occurrence: None)
  Receive Date: 20090728
  Receipt Date: 20090728
  Transmission Date: 20100115
  Serious: Yes (Disabling, Other)
  Sender: FDA-Public Use
  Company Number: None

PATIENT
  Age: 36 Year
  Sex: Female
  Weight: 68.0396 kg

DRUGS (1)
  1. LYRICA [Suspect]
     Indication: NEURALGIA
     Dosage: 1 PILL IN THE MORNING 1 PO
     Route: 048
     Dates: start: 20090427, end: 20090603

REACTIONS (6)
  - DISTURBANCE IN ATTENTION [None]
  - FEELING DRUNK [None]
  - FEELING OF BODY TEMPERATURE CHANGE [None]
  - IMPAIRED WORK ABILITY [None]
  - LOSS OF EMPLOYMENT [None]
  - WITHDRAWAL SYNDROME [None]
